FAERS Safety Report 8266498-6 (Version None)
Quarter: 2012Q2

REPORT INFORMATION
  Report Type: 
  Country: None (occurrence: None)
  Receive Date: 20120406
  Receipt Date: 20120328
  Transmission Date: 20120825
  Serious: Yes (Hospitalization, Other)
  Sender: FDA-Public Use
  Company Number: US-ASTRAZENECA-2011SE74411

PATIENT
  Age: 65 Year
  Sex: Female

DRUGS (10)
  1. NEXIUM [Suspect]
     Indication: DUODENAL ULCER
     Dosage: TWICE A DAY
     Route: 048
  2. SPIRIVA [Concomitant]
  3. ALBUTEROL [Concomitant]
  4. CARAFATE [Concomitant]
  5. PAXIL [Concomitant]
  6. NEURONTIN [Concomitant]
  7. IRON [Concomitant]
     Dosage: 325 ONCE A DAY
  8. SINEMET [Concomitant]
     Dosage: 25/100 FOUR TIMES A DAY
  9. ATIVAN [Concomitant]
  10. ADVAIR DISKUS 100/50 [Concomitant]
     Dosage: 250/50 ONE PUFF TWICE A DAY

REACTIONS (9)
  - ANAEMIA OF CHRONIC DISEASE [None]
  - GASTROINTESTINAL DISORDER [None]
  - DERMATITIS [None]
  - RESTLESS LEGS SYNDROME [None]
  - WEIGHT DECREASED [None]
  - DEPRESSION [None]
  - GASTROINTESTINAL ULCER HAEMORRHAGE [None]
  - GASTRIC ULCER [None]
  - FAECES DISCOLOURED [None]
